FAERS Safety Report 6612427-8 (Version None)
Quarter: 2010Q1

REPORT INFORMATION
  Report Type: 
  Country: None (occurrence: None)
  Receive Date: 20100303
  Receipt Date: 20100224
  Transmission Date: 20100710
  Serious: Yes (Other)
  Sender: FDA-Public Use
  Company Number: PHHY2009DE52412

PATIENT
  Sex: Female

DRUGS (3)
  1. FEMARA [Suspect]
     Indication: BREAST CANCER
     Dosage: 2.5 MG, QD
     Route: 048
     Dates: start: 20090706, end: 20100111
  2. FEMARA [Suspect]
     Dosage: 2.5 MG, QD
     Dates: start: 20100210
  3. SILICEA [Concomitant]
     Indication: MIGRAINE PROPHYLAXIS

REACTIONS (8)
  - BURNING SENSATION [None]
  - CARPAL TUNNEL SYNDROME [None]
  - CUBITAL TUNNEL SYNDROME [None]
  - HYPOAESTHESIA [None]
  - JOINT STIFFNESS [None]
  - MUSCULOSKELETAL STIFFNESS [None]
  - PARAESTHESIA [None]
  - TRIGGER FINGER [None]
